FAERS Safety Report 8106049 (Version 3)
Quarter: 2014Q1

REPORT INFORMATION
  Report Type: Spontaneous
  Country: US (occurrence: US)
  Receive Date: 20110825
  Receipt Date: 20140130
  Transmission Date: 20141002
  Serious: Yes (Other)
  Sender: FDA-Public Use
  Company Number: US-BAYER-2011-075488

PATIENT
  Age: 22 Year
  Sex: Female
  Weight: 77 kg

DRUGS (4)
  1. YAZ [Suspect]
     Indication: CONTRACEPTION
     Dosage: UNK
     Dates: start: 2009, end: 2010
  2. YAZ [Suspect]
     Indication: CONTRACEPTION
     Dosage: UNK
  3. MINOCYCLINE [Concomitant]
     Dosage: 90 MG, UNK
  4. DIFFERIN [Concomitant]
     Dosage: 0.1 %, UNK

REACTIONS (2)
  - Gallbladder injury [None]
  - Cholecystitis chronic [None]
